FAERS Safety Report 6007099-X (Version None)
Quarter: 2008Q4

REPORT INFORMATION
  Report Type: 
  Country: None (occurrence: None)
  Receive Date: 20081217
  Receipt Date: 20080110
  Transmission Date: 20090506
  Serious: No
  Sender: FDA-Public Use
  Company Number: US-ASTRAZENECA-2008UW00793

PATIENT
  Age: 72 Year
  Sex: Female
  Weight: 126.1 kg

DRUGS (2)
  1. CRESTOR [Suspect]
     Indication: HYPERCHOLESTEROLAEMIA
     Route: 048
     Dates: start: 20071201
  2. LISINOPRIL [Concomitant]

REACTIONS (3)
  - DYSPNOEA [None]
  - MUSCLE SPASMS [None]
  - PAIN IN JAW [None]
